FAERS Safety Report 23695316 (Version 1)
Quarter: 2024Q2

REPORT INFORMATION
  Report Type: Spontaneous
  Country: CN (occurrence: None)
  Receive Date: 20240402
  Receipt Date: 20240402
  Transmission Date: 20240716
  Serious: Yes (Hospitalization, Other)
  Sender: FDA-Public Use
  Company Number: 2024A074562

PATIENT
  Age: 79 Year
  Sex: Male
  Weight: 67.5 kg

DRUGS (3)
  1. DURVALUMAB [Suspect]
     Active Substance: DURVALUMAB
     Indication: Neoplasm
     Route: 042
     Dates: start: 20240226, end: 20240226
  2. ETOPOSIDE [Suspect]
     Active Substance: ETOPOSIDE
     Indication: Neoplasm
     Route: 041
     Dates: start: 20240227, end: 20240301
  3. CISPLATIN [Suspect]
     Active Substance: CISPLATIN
     Indication: Neoplasm
     Route: 041
     Dates: start: 20240227, end: 20240229

REACTIONS (1)
  - Myelosuppression [Recovered/Resolved]

NARRATIVE: CASE EVENT DATE: 20240320
